FAERS Safety Report 8943926 (Version 1)
Quarter: 2012Q4

REPORT INFORMATION
  Report Type: 
  Country: FR (occurrence: FR)
  Receive Date: 20121204
  Receipt Date: 20121204
  Transmission Date: 20130627
  Serious: Yes (Hospitalization)
  Sender: FDA-Public Use
  Company Number: FR-BMSGILMSD-2012-0052518

PATIENT
  Age: 42 Year
  Sex: Female

DRUGS (2)
  1. ATRIPLA [Suspect]
     Indication: HIV INFECTION
     Dosage: 1 DF, UNK
     Route: 048
     Dates: start: 20120318, end: 20120318
  2. TRIZIVIR [Concomitant]
     Indication: HIV INFECTION

REACTIONS (6)
  - Loss of consciousness [Recovered/Resolved]
  - Malaise [Unknown]
  - Self injurious behaviour [Recovered/Resolved]
  - Vomiting [Recovered/Resolved]
  - Nausea [Recovered/Resolved]
  - Vertigo [Recovered/Resolved]
